FAERS Safety Report 11288447 (Version 1)
Quarter: 2015Q3

REPORT INFORMATION
  Report Type: Spontaneous
  Country: US (occurrence: US)
  Receive Date: 20150721
  Receipt Date: 20150721
  Transmission Date: 20151125
  Serious: No
  Sender: FDA-Public Use
  Company Number: US-UNITED THERAPEUTICS-UNT-2015-002814

PATIENT
  Sex: Female
  Weight: 78.46 kg

DRUGS (4)
  1. REMODULIN [Suspect]
     Active Substance: TREPROSTINIL
     Indication: PULMONARY ARTERIAL HYPERTENSION
     Dosage: 0.074 ?G/KG/MIN, CONTINUING
     Route: 058
     Dates: start: 20141101
  2. REMODULIN [Suspect]
     Active Substance: TREPROSTINIL
     Dosage: 0.074 ?G/KG/MIN, CONTINUING
     Route: 058
     Dates: start: 20140916
  3. REMODULIN [Suspect]
     Active Substance: TREPROSTINIL
     Dosage: 0.078 ?G/KG/MIN,CONTINUING
     Route: 058
     Dates: start: 20140910
  4. LETAIRIS [Concomitant]
     Active Substance: AMBRISENTAN
     Indication: PRODUCT USED FOR UNKNOWN INDICATION

REACTIONS (5)
  - Infusion site pain [Unknown]
  - Weight decreased [Unknown]
  - Infusion site erythema [Unknown]
  - Device issue [Unknown]
  - Infusion site oedema [Unknown]
